FAERS Safety Report 13863177 (Version 2)
Quarter: 2017Q4

REPORT INFORMATION
  Report Type: Spontaneous
  Country: FR (occurrence: FR)
  Receive Date: 20170814
  Receipt Date: 20171026
  Transmission Date: 20180320
  Serious: Yes (Other)
  Sender: FDA-Public Use
  Company Number: FR-AUROBINDO-AUR-APL-2017-38574

PATIENT
  Age: 45 Year
  Sex: Female

DRUGS (3)
  1. LAMOTRIGINE ARROW LAB CHEWABLE OR DISPERSIBLE TABLETS 25 MG [Suspect]
     Active Substance: LAMOTRIGINE
     Dosage: 2 DF, DAILY
     Route: 048
     Dates: end: 20170725
  2. LAMOTRIGINE ARROW LAB CHEWABLE OR DISPERSIBLE TABLETS 25 MG [Suspect]
     Active Substance: LAMOTRIGINE
     Dosage: 100 MG, DAILY
     Route: 048
     Dates: start: 20170726
  3. LAMOTRIGINE ARROW LAB CHEWABLE OR DISPERSIBLE TABLETS 25 MG [Suspect]
     Active Substance: LAMOTRIGINE
     Indication: MIGRAINE
     Dosage: 1 DF, DAILY
     Route: 048
     Dates: start: 20170717

REACTIONS (4)
  - Hemianaesthesia [Recovered/Resolved]
  - Intentional product use issue [Unknown]
  - Throat tightness [Recovered/Resolved]
  - Paraesthesia [Recovered/Resolved]

NARRATIVE: CASE EVENT DATE: 20170724
